FAERS Safety Report 8595319-7 (Version None)
Quarter: 2012Q3

REPORT INFORMATION
  Report Type: 
  Country: None (occurrence: None)
  Receive Date: 20120815
  Receipt Date: 20120813
  Transmission Date: 20120928
  Serious: No
  Sender: FDA-Public Use
  Company Number: US-PFIZER INC-2012198241

PATIENT
  Sex: Female

DRUGS (2)
  1. LYRICA [Suspect]
     Indication: FIBROMYALGIA
     Dosage: 50 MG, 2X/DAY
     Route: 048
     Dates: start: 20120728
  2. LYRICA [Interacting]
     Indication: PAIN

REACTIONS (3)
  - DRUG INEFFECTIVE [None]
  - MUSCLE TWITCHING [None]
  - POTENTIATING DRUG INTERACTION [None]
